FAERS Safety Report 7642489-0 (Version None)
Quarter: 2011Q3

REPORT INFORMATION
  Report Type: 
  Country: None (occurrence: None)
  Receive Date: 20110728
  Receipt Date: 20110720
  Transmission Date: 20111222
  Serious: Yes (Hospitalization, Other)
  Sender: FDA-Public Use
  Company Number: CZ-ABBOTT-11P-217-0731260-00

PATIENT
  Sex: Male
  Weight: 77.5 kg

DRUGS (1)
  1. HUMIRA [Suspect]
     Indication: ANKYLOSING SPONDYLITIS
     Route: 058

REACTIONS (9)
  - ROAD TRAFFIC ACCIDENT [None]
  - INJURY [None]
  - SCAPULA FRACTURE [None]
  - MOBILITY DECREASED [None]
  - PNEUMOTHORAX [None]
  - RIB FRACTURE [None]
  - CHEST PAIN [None]
  - PAINFUL RESPIRATION [None]
  - MUSCULOSKELETAL PAIN [None]
